FAERS Safety Report 4349642-2 (Version None)
Quarter: 2004Q2

REPORT INFORMATION
  Report Type: 
  Country: None (occurrence: None)
  Receive Date: 20040427
  Receipt Date: 20040114
  Transmission Date: 20050107
  Serious: No
  Sender: FDA-Public Use
  Company Number: 000752

PATIENT

DRUGS (2)
  1. ZEVALIN [Suspect]
     Indication: NON-HODGKIN'S LYMPHOMA
     Dosage: SINGLE, RITUXAN DOSE 1, INTRAVENOUS; SINGLE, IN-[111] ZEVALIN, INTRAVENOUS
     Route: 042
     Dates: start: 20040113, end: 20040113
  2. ZEVALIN [Suspect]
     Indication: NON-HODGKIN'S LYMPHOMA
     Dosage: SINGLE, RITUXAN DOSE 1, INTRAVENOUS; SINGLE, IN-[111] ZEVALIN, INTRAVENOUS
     Route: 042
     Dates: start: 20040113, end: 20040113

REACTIONS (1)
  - ASCITES [None]
